FAERS Safety Report 8894568 (Version 1)
Quarter: 2012Q4

REPORT INFORMATION
  Report Type: 
  Country: HU (occurrence: US)
  Receive Date: 20121108
  Receipt Date: 20121108
  Transmission Date: 20130627
  Serious: Yes (Other)
  Sender: FDA-Public Use
  Company Number: US-AMGEN-USASP2012069549

PATIENT
  Age: 29 Year
  Sex: Female

DRUGS (3)
  1. CINACALCET HCL [Suspect]
     Indication: HYPERPARATHYROIDISM TERTIARY
     Dosage: 90 mg, tid
  2. SEVELAMER [Concomitant]
     Dosage: 3200 mg, tid
  3. PARICALCITOL [Concomitant]
     Dosage: 9 mug, tid on dialysis
     Route: 042

REACTIONS (9)
  - Exostosis [Unknown]
  - Hungry bone syndrome [Unknown]
  - Bone deformity [Recovering/Resolving]
  - Kyphoscoliosis [Unknown]
  - Spinal fracture [Unknown]
  - Osteopenia [Unknown]
  - Dysphagia [Unknown]
  - Speech disorder [Unknown]
  - Drug ineffective [Unknown]
